FAERS Safety Report 11549430 (Version 1)
Quarter: 2015Q3

REPORT INFORMATION
  Report Type: Spontaneous
  Country: US (occurrence: US)
  Receive Date: 20150924
  Receipt Date: 20150924
  Transmission Date: 20151125
  Serious: No
  Sender: FDA-Public Use
  Company Number: US-INCYTE CORPORATION-2015IN003280

PATIENT
  Age: 28 Year
  Sex: Male

DRUGS (8)
  1. AMOXICILLIN. [Concomitant]
     Active Substance: AMOXICILLIN
  2. ASPIRIN. [Concomitant]
     Active Substance: ASPIRIN
  3. LANTUS [Concomitant]
     Active Substance: INSULIN GLARGINE
  4. METOPROLOL [Concomitant]
     Active Substance: METOPROLOL
  5. LISINOPRIL. [Concomitant]
     Active Substance: LISINOPRIL
  6. JAKAFI [Suspect]
     Active Substance: RUXOLITINIB
     Indication: POLYCYTHAEMIA VERA
     Dosage: 10 MG, BID
     Dates: start: 2015
  7. HUMALOG [Concomitant]
     Active Substance: INSULIN LISPRO
  8. GABAPENTIN. [Concomitant]
     Active Substance: GABAPENTIN

REACTIONS (2)
  - Flushing [Recovered/Resolved]
  - Asthenia [Recovered/Resolved]

NARRATIVE: CASE EVENT DATE: 201506
